FAERS Safety Report 7256997-8 (Version None)
Quarter: 2011Q1

REPORT INFORMATION
  Report Type: 
  Country: None (occurrence: None)
  Receive Date: 20110129
  Receipt Date: 20100729
  Transmission Date: 20110831
  Serious: No
  Sender: FDA-Public Use
  Company Number: US-ABBOTT-10P-163-0660611-00

PATIENT
  Age: 57 Year
  Sex: Female

DRUGS (6)
  1. SYNTHROID [Concomitant]
     Indication: THYROID DISORDER
     Route: 048
  2. RELAFEN [Concomitant]
     Indication: ARTHRITIS
     Route: 048
  3. CLOBETASOL 0.05% [Concomitant]
     Indication: PSORIASIS
     Route: 061
  4. HUMIRA [Suspect]
     Indication: PSORIASIS
     Dates: start: 20090501
  5. LORAZEPAM [Concomitant]
     Indication: INSOMNIA
     Dosage: AT BEDTIME AS NEEDED
     Route: 048
  6. UREA [Concomitant]
     Indication: PSORIASIS
     Dosage: OCCASIONALLY
     Route: 061

REACTIONS (3)
  - HYPOAESTHESIA [None]
  - PARAESTHESIA [None]
  - DIZZINESS [None]
